FAERS Safety Report 5314456-3 (Version None)
Quarter: 2007Q2

REPORT INFORMATION
  Report Type: 
  Country: None (occurrence: None)
  Receive Date: 20070502
  Receipt Date: 20070416
  Transmission Date: 20071010
  Serious: Yes (Hospitalization)
  Sender: FDA-Public Use
  Company Number: FR-PFIZER INC-2007030171

PATIENT
  Sex: Female

DRUGS (2)
  1. TRIFLUCAN [Suspect]
     Indication: SYSTEMIC CANDIDA
     Dosage: DAILY DOSE:1200MG
     Route: 042
     Dates: start: 20070203, end: 20070223
  2. FLUCYTOSINE [Suspect]
     Indication: SYSTEMIC CANDIDA
     Route: 042
     Dates: start: 20070207, end: 20070223

REACTIONS (3)
  - ASTHENIA [None]
  - GAMMA-GLUTAMYLTRANSFERASE INCREASED [None]
  - HEPATIC STEATOSIS [None]
